FAERS Safety Report 5563948-0 (Version None)
Quarter: 2007Q4

REPORT INFORMATION
  Report Type: 
  Country: None (occurrence: None)
  Receive Date: 20071217
  Receipt Date: 20071204
  Transmission Date: 20080405
  Serious: Yes (Hospitalization, Other)
  Sender: FDA-Public Use
  Company Number: US-PFIZER INC-001-0902-M0200005

PATIENT
  Sex: Female
  Weight: 81.6 kg

DRUGS (5)
  1. NARDIL [Suspect]
     Indication: DEPRESSION
     Route: 048
  2. NARDIL [Suspect]
     Indication: PANIC ATTACK
     Route: 048
  3. NARDIL [Suspect]
     Indication: ANXIETY
     Route: 048
     Dates: start: 20070729, end: 20070801
  4. XANAX [Concomitant]
     Route: 048
  5. FLUOXETINE [Concomitant]
     Route: 048

REACTIONS (9)
  - DRUG DEPENDENCE [None]
  - DRY SKIN [None]
  - ERYTHEMA [None]
  - HYPERTENSION [None]
  - MANIA [None]
  - NERVOUSNESS [None]
  - PRURITUS [None]
  - SINUS DISORDER [None]
  - WEIGHT INCREASED [None]
